FAERS Safety Report 25421988 (Version 1)
Quarter: 2025Q2

REPORT INFORMATION
  Report Type: Spontaneous
  Country: US (occurrence: US)
  Receive Date: 20250611
  Receipt Date: 20250611
  Transmission Date: 20250717
  Serious: Yes (Other)
  Sender: AUROBINDO
  Company Number: US-AUROBINDO-AUR-APL-2022-014366

PATIENT
  Age: 31 Year
  Sex: Female

DRUGS (5)
  1. ADENOSINE [Suspect]
     Active Substance: ADENOSINE
     Indication: Atrial tachycardia
     Route: 042
  2. FLECAINIDE [Suspect]
     Active Substance: FLECAINIDE
     Indication: Atrial tachycardia
     Route: 065
  3. METOPROLOL [Suspect]
     Active Substance: METOPROLOL
     Indication: Atrial tachycardia
     Route: 042
  4. SOTALOL HYDROCHLORIDE [Suspect]
     Active Substance: SOTALOL HYDROCHLORIDE
     Indication: Atrial tachycardia
     Route: 065
  5. DILTIAZEM [Suspect]
     Active Substance: DILTIAZEM
     Indication: Atrial tachycardia
     Route: 042

REACTIONS (2)
  - Drug ineffective [Unknown]
  - Exposure during pregnancy [Unknown]
